FAERS Safety Report 9495921 (Version 1)
Quarter: 2013Q3

REPORT INFORMATION
  Report Type: Spontaneous
  Country: GB (occurrence: GB)
  Receive Date: 20130903
  Receipt Date: 20130903
  Transmission Date: 20140515
  Serious: Yes (Life-Threatening, Other)
  Sender: FDA-Public Use
  Company Number: GB-MYLANLABS-2013S1018919

PATIENT
  Age: 51 Year
  Sex: Female

DRUGS (2)
  1. MITOXANTRONE [Suspect]
     Indication: MULTIPLE SCLEROSIS
     Dosage: 5 MG/M2 [FREQUENCY NOT STATED]
     Route: 065
  2. COPAXONE [Concomitant]
     Indication: MULTIPLE SCLEROSIS
     Dosage: DOSAGE NOT STATED
     Route: 065

REACTIONS (2)
  - Acute myeloid leukaemia [Unknown]
  - Leukaemia cutis [Unknown]
